FAERS Safety Report 10537518 (Version 1)
Quarter: 2014Q4

REPORT INFORMATION
  Report Type: Spontaneous
  Country: US (occurrence: None)
  Receive Date: 20141022
  Receipt Date: 20141022
  Transmission Date: 20150529
  Serious: Yes (Hospitalization)
  Sender: FDA-Public Use
  Company Number: None

PATIENT
  Age: 63 Year
  Sex: Female

DRUGS (1)
  1. AFINITOR [Suspect]
     Active Substance: EVEROLIMUS
     Route: 048
     Dates: start: 20140625

REACTIONS (4)
  - Pneumonia [None]
  - Epistaxis [None]
  - Dyspnoea [None]
  - Platelet count decreased [None]

NARRATIVE: CASE EVENT DATE: 20141017
